FAERS Safety Report 22676385 (Version 2)
Quarter: 2023Q4

REPORT INFORMATION
  Report Type: Report from Study
  Country: KR (occurrence: KR)
  Receive Date: 20230706
  Receipt Date: 20231003
  Transmission Date: 20240110
  Serious: Yes (Hospitalization, Other)
  Sender: FDA-Public Use
  Company Number: KR-002147023-NVSC2022KR192766

PATIENT
  Age: 52 Year
  Sex: Female
  Weight: 65 kg

DRUGS (22)
  1. KISQALI [Suspect]
     Active Substance: RIBOCICLIB
     Indication: Breast cancer metastatic
     Dosage: 600 MG, QD
     Route: 048
     Dates: start: 20220704, end: 20220724
  2. KISQALI [Suspect]
     Active Substance: RIBOCICLIB
     Dosage: 600 MG, QD
     Route: 048
     Dates: start: 20220810, end: 20220830
  3. KISQALI [Suspect]
     Active Substance: RIBOCICLIB
     Dosage: 600 MG, QD
     Route: 048
     Dates: start: 20220907, end: 20220927
  4. KISQALI [Suspect]
     Active Substance: RIBOCICLIB
     Dosage: 600 MG, QD
     Route: 048
     Dates: start: 20221012, end: 20221101
  5. KISQALI [Suspect]
     Active Substance: RIBOCICLIB
     Dosage: 600 MG, QD
     Route: 048
     Dates: start: 20221114, end: 20221204
  6. KISQALI [Suspect]
     Active Substance: RIBOCICLIB
     Dosage: 600 MG
     Route: 048
     Dates: start: 20221221, end: 20221223
  7. KISQALI [Suspect]
     Active Substance: RIBOCICLIB
     Dosage: 600 MG
     Route: 048
     Dates: start: 20220704, end: 20221204
  8. FEMARA [Concomitant]
     Active Substance: LETROZOLE
     Indication: Breast cancer
     Dosage: 2.5 MG, QD
     Route: 048
     Dates: start: 20220704
  9. CYMBALTA [Concomitant]
     Active Substance: DULOXETINE HYDROCHLORIDE
     Indication: Prophylaxis
     Dosage: 60 MG, QD
     Route: 048
     Dates: start: 20220525, end: 20220725
  10. LEVOTHYROXINE SODIUM [Concomitant]
     Active Substance: LEVOTHYROXINE SODIUM
     Indication: Thyroid cancer
     Dosage: 125 UG, QD
     Route: 048
     Dates: start: 20190109
  11. LEVOTHYROXINE SODIUM [Concomitant]
     Active Substance: LEVOTHYROXINE SODIUM
     Indication: Prophylaxis
  12. ULTRACET [Concomitant]
     Active Substance: ACETAMINOPHEN\TRAMADOL HYDROCHLORIDE
     Indication: Prophylaxis
     Dosage: 2 DOSAGE FORM, QD
     Route: 048
     Dates: start: 20220518
  13. ONEALFA [Concomitant]
     Active Substance: ALFACALCIDOL
     Indication: Prophylaxis
     Dosage: 0.5 UG, QD
     Route: 048
     Dates: start: 20190710
  14. NALOXONE HYDROCHLORIDE\OXYCODONE HYDROCHLORIDE [Concomitant]
     Active Substance: NALOXONE HYDROCHLORIDE\OXYCODONE HYDROCHLORIDE
     Indication: Prophylaxis
     Dosage: 2 DOSAGE FORM, QD
     Route: 048
     Dates: start: 20220504
  15. OXYCODONE HYDROCHLORIDE [Concomitant]
     Active Substance: OXYCODONE HYDROCHLORIDE
     Indication: Prophylaxis
     Dosage: 5 MG, TID/DAY
     Route: 048
     Dates: start: 20220704, end: 20220725
  16. TRENTAL [Concomitant]
     Active Substance: PENTOXIFYLLINE
     Indication: Prophylaxis
     Dosage: 1200 MG, QD (CR TAB 400)
     Route: 048
     Dates: start: 20220620, end: 20220820
  17. GOSERELIN [Concomitant]
     Active Substance: GOSERELIN
     Indication: Breast cancer
     Dosage: 3.78 MG, QD
     Route: 058
     Dates: start: 20220704, end: 20220704
  18. GOSERELIN [Concomitant]
     Active Substance: GOSERELIN
     Dosage: 3.78 MG, QD
     Route: 058
     Dates: start: 20220810, end: 20220810
  19. GOSERELIN [Concomitant]
     Active Substance: GOSERELIN
     Dosage: 3.78 MG, QD
     Route: 058
     Dates: start: 20220907, end: 20220907
  20. GOSERELIN [Concomitant]
     Active Substance: GOSERELIN
     Dosage: 3.78 MG, QD
     Route: 058
     Dates: start: 20221012, end: 20221012
  21. GOSERELIN [Concomitant]
     Active Substance: GOSERELIN
     Dosage: 3.78 MG, QD
     Route: 058
     Dates: start: 20221114, end: 20221114
  22. IOHEXOL [Concomitant]
     Active Substance: IOHEXOL
     Indication: Metastases to adrenals
     Dosage: UNK
     Route: 065

REACTIONS (6)
  - Pleural effusion [Recovered/Resolved with Sequelae]
  - Neutropenia [Recovered/Resolved]
  - Neutropenia [Recovered/Resolved]
  - Neutropenia [Recovered/Resolved]
  - Leiomyoma [Not Recovered/Not Resolved]
  - Pruritus [Recovered/Resolved]

NARRATIVE: CASE EVENT DATE: 20220705
